FAERS Safety Report 7900552-0 (Version None)
Quarter: 2011Q4

REPORT INFORMATION
  Report Type: 
  Country: None (occurrence: None)
  Receive Date: 20111108
  Receipt Date: 20111101
  Transmission Date: 20120403
  Serious: No
  Sender: FDA-Public Use
  Company Number: US-PFIZER INC-2011268353

PATIENT
  Sex: Male

DRUGS (2)
  1. PENICILLIN G POTASSIUM [Suspect]
     Dosage: UNK
  2. CLINDAMYCIN PHOSPHATE [Suspect]
     Dosage: UNK

REACTIONS (1)
  - DRUG HYPERSENSITIVITY [None]
